FAERS Safety Report 21447837 (Version 1)
Quarter: 2022Q4

REPORT INFORMATION
  Report Type: Spontaneous
  Country: ES (occurrence: ES)
  Receive Date: 20221012
  Receipt Date: 20221012
  Transmission Date: 20230113
  Serious: Yes (Life-Threatening, Hospitalization)
  Sender: FDA-Public Use
  Company Number: None

PATIENT
  Age: 62 Year
  Sex: Male

DRUGS (3)
  1. TADALAFIL [Suspect]
     Active Substance: TADALAFIL
     Indication: Erectile dysfunction
     Dosage: 28 TABLETS , FORM STRENGTH : 5 MG , UNIT DOSE : 5 MG   , FREQUENCY TIME : 1 DAY  , DURATION : 1211 D
     Dates: start: 20190411, end: 20220803
  2. OMEPRAZOLE [Concomitant]
     Active Substance: OMEPRAZOLE
     Indication: Oesophagitis
     Dosage: 20 MILLIGRAM DAILY; 1-0-0 , OMEPRAZOL (2141A) , DURATION : 58 DAYS
     Dates: start: 20200607, end: 20200803
  3. LISINOPRIL [Concomitant]
     Active Substance: LISINOPRIL
     Indication: Hypertension
     Dosage: 20 MILLIGRAM DAILY; 1/D , LISINOPRIL (2222A) , DURATION : 2 YEARS
     Dates: start: 2020, end: 20220803

REACTIONS (2)
  - Arteriospasm coronary [Recovered/Resolved]
  - Cardio-respiratory arrest [Recovered/Resolved]

NARRATIVE: CASE EVENT DATE: 20220803
